FAERS Safety Report 26104546 (Version 1)
Quarter: 2025Q4

REPORT INFORMATION
  Report Type: Report from Study
  Country: GB (occurrence: GB)
  Receive Date: 20251130
  Receipt Date: 20251130
  Transmission Date: 20260118
  Serious: Yes (Other)
  Sender: ABBVIE
  Company Number: GB-ABBVIE-6568568

PATIENT
  Sex: Male

DRUGS (1)
  1. RINVOQ [Suspect]
     Active Substance: UPADACITINIB
     Indication: Colitis ulcerative
     Dosage: RINVOQ 30MG MODIFIED-RELEASE TABLETS (ABBVIE LTD) 28 TABLET 4 X 7 TABLETS?MODIFIED-RELEASE TABLET
     Route: 048

REACTIONS (1)
  - Colectomy [Unknown]
